FAERS Safety Report 6142781-5 (Version None)
Quarter: 2009Q2

REPORT INFORMATION
  Report Type: 
  Country: None (occurrence: None)
  Receive Date: 20090403
  Receipt Date: 20090324
  Transmission Date: 20091009
  Serious: Yes (Hospitalization)
  Sender: FDA-Public Use
  Company Number: GB-AMGEN-US312538

PATIENT
  Age: 43 Year
  Sex: Male
  Weight: 65 kg

DRUGS (5)
  1. ENBREL [Suspect]
     Indication: PSORIATIC ARTHROPATHY
     Route: 058
     Dates: end: 20080912
  2. OMEPRAZOLE [Concomitant]
     Indication: PROPHYLAXIS AGAINST GASTROINTESTINAL ULCER
  3. METHOTREXATE [Concomitant]
     Dates: start: 20080801
  4. CELECOXIB [Concomitant]
  5. FOLIC ACID [Concomitant]

REACTIONS (8)
  - ARTHRALGIA [None]
  - ARTHRITIS BACTERIAL [None]
  - BLOOD GLUCOSE INCREASED [None]
  - BLOOD PHOSPHORUS DECREASED [None]
  - HYPERHIDROSIS [None]
  - MALAISE [None]
  - PRODUCT QUALITY ISSUE [None]
  - PROTEIN TOTAL INCREASED [None]
